FAERS Safety Report 7461746-4 (Version None)
Quarter: 2011Q2

REPORT INFORMATION
  Report Type: 
  Country: None (occurrence: None)
  Receive Date: 20110506
  Receipt Date: 20100116
  Transmission Date: 20111010
  Serious: Yes (Death, Other)
  Sender: FDA-Public Use
  Company Number: US-BAYER-201011343NA

PATIENT
  Age: 78 Year
  Sex: Male
  Weight: 79.365 kg

DRUGS (28)
  1. CORDARONE [Concomitant]
     Dosage: 150MG/3ML
     Route: 042
     Dates: start: 20050117
  2. DOPAMINE HCL [Concomitant]
     Dosage: UNK
     Route: 042
     Dates: start: 20050117
  3. INSULIN [Concomitant]
     Dosage: UNK
     Route: 042
     Dates: start: 20050117
  4. TRASYLOL [Suspect]
     Indication: COX-MAZE PROCEDURE
  5. ACETYLSALICYLIC ACID SRT [Concomitant]
     Dosage: 325 MG, QD
     Route: 048
  6. ANCEF [Concomitant]
     Dosage: 1 G, UNK
     Route: 042
     Dates: start: 20050117, end: 20050117
  7. THIOPENTAL SODIUM [Concomitant]
     Dosage: 400 MG, UNK
     Route: 042
     Dates: start: 20050117, end: 20050117
  8. DARVOCET [Concomitant]
  9. DIURIL [Concomitant]
     Dosage: 25 MG, QD
     Route: 048
     Dates: start: 20050110
  10. ISOVUE-128 [Concomitant]
     Dosage: 80 ML, UNK
     Route: 042
     Dates: start: 20050113, end: 20050113
  11. MUCOMYST [Concomitant]
     Dosage: 600 MG, BID
     Route: 048
     Dates: start: 20050114
  12. NITROGLYCERIN [Concomitant]
     Dosage: 1 INCH EVERY 6 HOURS; APPLY TO CHEST WALL
     Route: 061
     Dates: start: 20050110
  13. NITROGLYCERIN [Concomitant]
     Dosage: 0.4 MG, PRN
     Route: 060
     Dates: start: 20050110
  14. BETHANECHOL [Concomitant]
     Dosage: 25 MG, QID
     Route: 048
  15. ISOSORBIDE DINITRATE [Concomitant]
     Dosage: 10 MG, TID
     Route: 048
     Dates: end: 20050110
  16. SIMVASTATIN [Concomitant]
     Dosage: 40 MG, QD
     Route: 048
  17. NOVOLIN [INSULIN] [Concomitant]
     Dosage: 30 U, QD, IN THE MORNING
     Route: 058
  18. FENTANYL [Concomitant]
     Dosage: UNK
     Route: 042
     Dates: start: 20050117, end: 20050117
  19. VERSED [Concomitant]
     Dosage: UNK
     Route: 042
     Dates: start: 20050117, end: 20050117
  20. TRASYLOL [Suspect]
     Indication: CORONARY ARTERY BYPASS
     Dosage: 1ML INITIAL TEST DOSE, 100ML PUMP PRIME DOSE, THEN 25ML/HR
     Dates: start: 20050117, end: 20050117
  21. ACTOS [Concomitant]
     Dosage: 30 MG, QD
     Route: 048
     Dates: start: 20050110
  22. ATENOLOL [Concomitant]
     Dosage: 25 MG, QD
     Route: 048
     Dates: start: 20050110
  23. NORCURON [Concomitant]
     Dosage: UNK
     Route: 042
     Dates: start: 20050117, end: 20050117
  24. PROTAMINE SULFATE [Concomitant]
     Dosage: UNK
     Route: 042
     Dates: start: 20050117, end: 20050117
  25. ATENOLOL [Concomitant]
     Dosage: 25 MG; 1/2 TABLET TID
     Route: 048
  26. FOSINOPRIL SODIUM [Concomitant]
     Dosage: 20 MG, QD
     Route: 048
  27. HEPARIN [Concomitant]
     Dosage: 17000 U, UNK
     Route: 042
     Dates: start: 20050117, end: 20050117
  28. HUMULIN [INSULIN HUMAN] [Concomitant]
     Dosage: SLIDING SCALE
     Route: 058
     Dates: start: 20050110

REACTIONS (14)
  - RENAL INJURY [None]
  - ANHEDONIA [None]
  - ORGAN FAILURE [None]
  - ANXIETY [None]
  - DEATH [None]
  - RENAL IMPAIRMENT [None]
  - PAIN [None]
  - DEPRESSION [None]
  - RENAL FAILURE [None]
  - CEREBROVASCULAR ACCIDENT [None]
  - UNEVALUABLE EVENT [None]
  - FEAR [None]
  - INJURY [None]
  - CARDIAC DISORDER [None]
